FAERS Safety Report 14689616 (Version 2)
Quarter: 2018Q2

REPORT INFORMATION
  Report Type: Spontaneous
  Country: US (occurrence: US)
  Receive Date: 20180328
  Receipt Date: 20180409
  Transmission Date: 20180711
  Serious: Yes (Hospitalization, Other)
  Sender: FDA-Public Use
  Company Number: US-CELGENEUS-USA-20180308238

PATIENT
  Age: 68 Year
  Sex: Male
  Weight: 103.06 kg

DRUGS (7)
  1. BENDAMUSTINE [Concomitant]
     Active Substance: BENDAMUSTINE
     Indication: MANTLE CELL LYMPHOMA
     Route: 041
     Dates: start: 20180321
  2. THALOMID [Suspect]
     Active Substance: THALIDOMIDE
     Dosage: 200 MILLIGRAM
     Route: 048
     Dates: start: 20171008
  3. ALDACTONE [Concomitant]
     Active Substance: SPIRONOLACTONE
     Indication: DIURETIC THERAPY
     Route: 048
     Dates: start: 20130710
  4. THALOMID [Suspect]
     Active Substance: THALIDOMIDE
     Indication: MANTLE CELL LYMPHOMA
     Dosage: 200 MILLIGRAM
     Route: 048
     Dates: start: 20130528
  5. RITUXAN [Concomitant]
     Active Substance: RITUXIMAB
     Indication: MANTLE CELL LYMPHOMA
     Route: 041
     Dates: start: 20180321
  6. ALLOPURINOL. [Concomitant]
     Active Substance: ALLOPURINOL
     Indication: HYPERURICAEMIA
     Route: 048
     Dates: start: 201212
  7. LASIX [Concomitant]
     Active Substance: FUROSEMIDE
     Indication: DIURETIC THERAPY
     Route: 048
     Dates: start: 20130710

REACTIONS (1)
  - Mantle cell lymphoma [Recovered/Resolved]

NARRATIVE: CASE EVENT DATE: 20180206
